FAERS Safety Report 13707168 (Version 2)
Quarter: 2017Q3

REPORT INFORMATION
  Report Type: Spontaneous
  Country: IT (occurrence: IT)
  Receive Date: 20170630
  Receipt Date: 20170705
  Transmission Date: 20171127
  Serious: Yes (Other)
  Sender: FDA-Public Use
  Company Number: IT-PFIZER INC-2017280363

PATIENT
  Age: 46 Year
  Sex: Male

DRUGS (2)
  1. DIFLUCAN [Suspect]
     Active Substance: FLUCONAZOLE
     Indication: FUNGAL INFECTION
     Dosage: 1 DF, AS NEEDED
     Route: 048
     Dates: start: 20170619, end: 20170619
  2. OKITASK [Suspect]
     Active Substance: KETOPROFEN LYSINE
     Indication: INFLAMMATION
     Dosage: 1 DF, AS NEEDED
     Route: 060
     Dates: start: 20170619, end: 20170619

REACTIONS (3)
  - Hypersensitivity [Recovering/Resolving]
  - Angioedema [Recovering/Resolving]
  - Palatal oedema [Recovering/Resolving]

NARRATIVE: CASE EVENT DATE: 20170619
